FAERS Safety Report 6793338-4 (Version None)
Quarter: 2010Q2

REPORT INFORMATION
  Report Type: 
  Country: None (occurrence: None)
  Receive Date: 20100624
  Receipt Date: 20100223
  Transmission Date: 20101027
  Serious: Yes (Other)
  Sender: FDA-Public Use
  Company Number: US-MYLANLABS-2009S1021067

PATIENT
  Age: 11 Year
  Sex: Female

DRUGS (9)
  1. CLOZAPINE [Suspect]
     Indication: HALLUCINATION, AUDITORY
     Route: 048
     Dates: start: 20091202, end: 20091228
  2. CLOZAPINE [Suspect]
     Indication: SCHIZOAFFECTIVE DISORDER
     Route: 048
     Dates: start: 20091202, end: 20091228
  3. CLOZAPINE [Suspect]
     Route: 048
  4. CLOZAPINE [Suspect]
     Route: 048
  5. VYVANSE [Concomitant]
     Indication: ATTENTION DEFICIT/HYPERACTIVITY DISORDER
     Route: 048
  6. REMERON [Concomitant]
     Indication: DEPRESSION
     Route: 048
  7. CLONIDINE [Concomitant]
     Indication: MOOD DISORDER DUE TO A GENERAL MEDICAL CONDITION
     Route: 048
  8. ZYPREXA [Concomitant]
     Indication: AGITATION
     Dosage: Q12HR PRN
     Route: 048
  9. LITHIUM CARBONATE [Concomitant]
     Route: 048

REACTIONS (2)
  - GRANULOCYTOPENIA [None]
  - LEUKOPENIA [None]
